FAERS Safety Report 23989414 (Version 1)
Quarter: 2024Q2

REPORT INFORMATION
  Report Type: Spontaneous
  Country: US (occurrence: US)
  Receive Date: 20240619
  Receipt Date: 20240619
  Transmission Date: 20240716
  Serious: Yes (Other)
  Sender: FDA-Public Use
  Company Number: US-MLMSERVICE-20240403-PI011515-00322-1

PATIENT
  Sex: Female

DRUGS (1)
  1. TRAMADOL [Suspect]
     Active Substance: TRAMADOL\TRAMADOL HYDROCHLORIDE
     Indication: Product used for unknown indication
     Dosage: EXTREMELY HIGH DOSES OF TRAMADOL
     Route: 065

REACTIONS (2)
  - Seizure [Recovered/Resolved]
  - Drug dependence [Recovering/Resolving]
